FAERS Safety Report 9553953 (Version 1)
Quarter: 2013Q3

REPORT INFORMATION
  Report Type: Spontaneous
  Country: JM (occurrence: JM)
  Receive Date: 20130925
  Receipt Date: 20130925
  Transmission Date: 20140515
  Serious: Yes (Death)
  Sender: FDA-Public Use
  Company Number: JM-B.I. PHARMACEUTICALS,INC./RIDGEFIELD-2013-CN-01572CN

PATIENT
  Age: 50 Year
  Sex: Male

DRUGS (1)
  1. PRADAX [Suspect]
     Indication: PULMONARY EMBOLISM
     Dates: start: 201308

REACTIONS (1)
  - Pulmonary embolism [Fatal]
